FAERS Safety Report 23526069 (Version 3)
Quarter: 2024Q1

REPORT INFORMATION
  Report Type: Spontaneous
  Country: JP (occurrence: JP)
  Receive Date: 20240215
  Receipt Date: 20240226
  Transmission Date: 20240410
  Serious: No
  Sender: FDA-Public Use
  Company Number: JP-ASTELLAS-2024JP001081

PATIENT
  Age: 76 Year
  Sex: Female

DRUGS (6)
  1. PROGRAF [Suspect]
     Active Substance: TACROLIMUS
     Indication: Kidney transplant rejection
     Dosage: 1 MG, TWICE DAILY, AFTER BREAKFAST AND DINNER (7:30 TO 8:30 AT MORNING AND 6:30 AT EVENING)
     Route: 048
     Dates: start: 20240115
  2. PROGRAF [Suspect]
     Active Substance: TACROLIMUS
     Dosage: UNK UNK, UNKNOWN FREQ.
     Route: 048
     Dates: start: 20240206
  3. PROGRAF [Suspect]
     Active Substance: TACROLIMUS
     Dosage: 1 MG, TWICE DAILY, AFTER BREAKFAST AND DINNER (7:30 TO 8:30 AT MORNING AND 6:30 AT EVENING)
     Route: 048
     Dates: start: 20240207, end: 20240209
  4. PROGRAF [Suspect]
     Active Substance: TACROLIMUS
     Indication: Kidney transplant rejection
     Dosage: 0.25 MG, TWICE DAILY, AFTER BREAKFAST AND DINNER (7:30 TO 8:30 AT MORNING AND 6:30 AT EVENING)
     Route: 048
     Dates: start: 20240115, end: 20240209
  5. TACROLIMUS [Concomitant]
     Active Substance: TACROLIMUS
     Indication: Renal transplant
     Route: 048
  6. TACROLIMUS [Concomitant]
     Active Substance: TACROLIMUS
     Indication: Renal transplant
     Dosage: 0.5 MG, ONCE DAILY
     Route: 048

REACTIONS (2)
  - Dysphagia [Unknown]
  - Wrong technique in product usage process [Unknown]

NARRATIVE: CASE EVENT DATE: 20240209
